FAERS Safety Report 22396642 (Version 1)
Quarter: 2023Q2

REPORT INFORMATION
  Report Type: Spontaneous
  Country: US (occurrence: US)
  Receive Date: 20230601
  Receipt Date: 20230601
  Transmission Date: 20230721
  Serious: No
  Sender: FDA-Public Use
  Company Number: US-APIL-2310908US

PATIENT
  Age: 70 Year
  Sex: Female
  Weight: 68.038 kg

DRUGS (3)
  1. RESTASIS [Suspect]
     Active Substance: CYCLOSPORINE
     Indication: Eye pruritus
     Dosage: 0.4 ML, BID
     Route: 047
     Dates: start: 20230128
  2. RESTASIS [Suspect]
     Active Substance: CYCLOSPORINE
     Indication: Dry eye
  3. PREDNISONE [Concomitant]
     Active Substance: PREDNISONE
     Indication: Mucous membrane pemphigoid

REACTIONS (5)
  - Pain [Recovered/Resolved]
  - Burning sensation [Recovered/Resolved]
  - Ocular hyperaemia [Recovered/Resolved]
  - Pruritus [Not Recovered/Not Resolved]
  - Dry eye [Not Recovered/Not Resolved]

NARRATIVE: CASE EVENT DATE: 20230209
